FAERS Safety Report 15948861 (Version 1)
Quarter: 2019Q1

REPORT INFORMATION
  Report Type: Report from Study
  Country: None (occurrence: BR)
  Receive Date: 20190211
  Receipt Date: 20190211
  Transmission Date: 20190417
  Serious: Yes (Hospitalization)
  Sender: FDA-Public Use
  Company Number: BR-ABBVIE-19K-020-2659277-00

PATIENT
  Age: 74 Year
  Sex: Male
  Weight: 72 kg

DRUGS (3)
  1. HUMIRA [Suspect]
     Active Substance: ADALIMUMAB
     Indication: PSORIATIC ARTHROPATHY
     Route: 058
     Dates: start: 20180901
  2. SALINE [Concomitant]
     Active Substance: SODIUM CHLORIDE
     Indication: PRODUCT USED FOR UNKNOWN INDICATION
  3. LOSARTAN. [Concomitant]
     Active Substance: LOSARTAN
     Indication: HYPERTENSION

REACTIONS (9)
  - Swelling [Recovering/Resolving]
  - Drug ineffective [Recovering/Resolving]
  - Erythema [Recovering/Resolving]
  - Inflammatory marker increased [Recovering/Resolving]
  - Weight decreased [Recovering/Resolving]
  - Muscle disorder [Unknown]
  - Weight increased [Recovering/Resolving]
  - Dermatitis [Recovering/Resolving]
  - Malaise [Recovering/Resolving]

NARRATIVE: CASE EVENT DATE: 201809
